FAERS Safety Report 9766220 (Version 1)
Quarter: 2013Q4

REPORT INFORMATION
  Report Type: Spontaneous
  Country: US (occurrence: US)
  Receive Date: 20131217
  Receipt Date: 20131217
  Transmission Date: 20140711
  Serious: No
  Sender: FDA-Public Use
  Company Number: US-PFIZER INC-2013356951

PATIENT
  Age: 70 Year
  Sex: Female
  Weight: 68.03 kg

DRUGS (3)
  1. NORVASC [Suspect]
     Indication: HYPERTENSION
     Dosage: 5 MG, 1X/DAY
  2. AMLODIPINE BESILATE [Suspect]
     Indication: HYPERTENSION
     Dosage: UNK
  3. COSOPT [Concomitant]
     Indication: GLAUCOMA
     Dosage: UNK, 2X/DAY

REACTIONS (3)
  - Cardiac murmur [Unknown]
  - Blood pressure inadequately controlled [Unknown]
  - Heart rate increased [Unknown]
